FAERS Safety Report 18537728 (Version 5)
Quarter: 2021Q2

REPORT INFORMATION
  Report Type: Report from Study
  Country: US (occurrence: US)
  Receive Date: 20201123
  Receipt Date: 20210518
  Transmission Date: 20210717
  Serious: Yes (Hospitalization, Other)
  Sender: FDA-Public Use
  Company Number: US-SEATTLE GENETICS-2020SGN05165

PATIENT
  Age: 66 Year
  Sex: Male

DRUGS (1)
  1. TUCATINIB [Suspect]
     Active Substance: TUCATINIB
     Indication: OESOPHAGEAL CARCINOMA
     Dosage: 300 MG, BID
     Dates: start: 20201104

REACTIONS (13)
  - Emotional disorder [Unknown]
  - Diarrhoea [Unknown]
  - Acute kidney injury [Unknown]
  - Abdominal pain [Unknown]
  - Product dose omission issue [Unknown]
  - Swelling [Unknown]
  - Haematuria [Unknown]
  - Dehydration [Unknown]
  - Dyspepsia [Unknown]
  - Thrombosis [Unknown]
  - Loss of personal independence in daily activities [Unknown]
  - Product use in unapproved indication [Unknown]
  - Red blood cell count decreased [Unknown]

NARRATIVE: CASE EVENT DATE: 20201112
